FAERS Safety Report 9885001 (Version 1)
Quarter: 2014Q1

REPORT INFORMATION
  Report Type: Spontaneous
  Country: US (occurrence: None)
  Receive Date: 20140207
  Receipt Date: 20140207
  Transmission Date: 20141002
  Serious: Yes (Hospitalization)
  Sender: FDA-Public Use
  Company Number: None

PATIENT
  Age: 78 Year
  Sex: Male
  Weight: 80.9 kg

DRUGS (2)
  1. MYCOPHENOLATE [Suspect]
     Route: 048
     Dates: start: 20050224, end: 20131211
  2. TACROLIMUS [Suspect]
     Indication: HEART TRANSPLANT
     Route: 048
     Dates: start: 20050224, end: 20131211

REACTIONS (3)
  - Guillain-Barre syndrome [None]
  - Thrombosis [None]
  - Clostridium difficile infection [None]
